FAERS Safety Report 18827191 (Version 1)
Quarter: 2021Q1

REPORT INFORMATION
  Report Type: Spontaneous
  Country: CA (occurrence: CA)
  Receive Date: 20210202
  Receipt Date: 20210202
  Transmission Date: 20210419
  Serious: Yes (Other)
  Sender: FDA-Public Use
  Company Number: CA-JNJFOC-20210147708

PATIENT
  Age: 18 Year
  Sex: Female

DRUGS (3)
  1. INFLIXIMAB, RECOMBINANT [Suspect]
     Active Substance: INFLIXIMAB
     Indication: CROHN^S DISEASE
     Route: 042
  2. PREDNISONE. [Concomitant]
     Active Substance: PREDNISONE
     Route: 065
  3. COLECALCIFEROL [Concomitant]
     Active Substance: CHOLECALCIFEROL
     Dosage: VITAMIN D
     Route: 065

REACTIONS (8)
  - Inappropriate schedule of product administration [Unknown]
  - Faecal calprotectin abnormal [Unknown]
  - Condition aggravated [Unknown]
  - Malaise [Unknown]
  - Anal fissure [Unknown]
  - Mouth ulceration [Unknown]
  - Off label use [Unknown]
  - Eye inflammation [Unknown]
